FAERS Safety Report 6339788-1 (Version None)
Quarter: 2009Q3

REPORT INFORMATION
  Report Type: 
  Country: None (occurrence: None)
  Receive Date: 20090903
  Receipt Date: 20090827
  Transmission Date: 20100115
  Serious: Yes (Death, Hospitalization)
  Sender: FDA-Public Use
  Company Number: US-GILEAD-2009-0023038

PATIENT
  Sex: Female

DRUGS (1)
  1. LETAIRIS [Suspect]
     Indication: PULMONARY ARTERIAL HYPERTENSION
     Route: 048
     Dates: start: 20090225, end: 20090601

REACTIONS (3)
  - ANOXIC ENCEPHALOPATHY [None]
  - CARDIO-RESPIRATORY ARREST [None]
  - HEART RATE INCREASED [None]
